FAERS Safety Report 7477847-0 (Version None)
Quarter: 2011Q2

REPORT INFORMATION
  Report Type: 
  Country: None (occurrence: None)
  Receive Date: 20110513
  Receipt Date: 20110504
  Transmission Date: 20111010
  Serious: Yes (Other)
  Sender: FDA-Public Use
  Company Number: NL-NOVOPROD-326794

PATIENT
  Age: 65 Year
  Sex: Female
  Weight: 98 kg

DRUGS (6)
  1. SIMVASTATIN [Concomitant]
     Dosage: 40 MG, UNK
  2. VICTOZA [Suspect]
     Indication: TYPE 2 DIABETES MELLITUS
     Dosage: 0.6 MG, QD
     Route: 065
     Dates: start: 20101109, end: 20101118
  3. VICTOZA [Suspect]
     Dosage: 1.2 MG, UNK
     Route: 065
     Dates: end: 20110318
  4. METFORMIN HCL [Concomitant]
     Dosage: 2000 MG, UNK
  5. GLICLAZIDE [Concomitant]
     Dosage: 24 MG, UNK
  6. LOSARTAN [Concomitant]
     Dosage: 100 MG, UNK

REACTIONS (2)
  - IRON DEFICIENCY ANAEMIA [None]
  - INTESTINAL POLYP [None]
